FAERS Safety Report 10087052 (Version 1)
Quarter: 2014Q2

REPORT INFORMATION
  Report Type: Report from Study
  Country: US (occurrence: US)
  Receive Date: 20140418
  Receipt Date: 20140418
  Transmission Date: 20141212
  Serious: Yes (Other)
  Sender: FDA-Public Use
  Company Number: US-ABBVIE-14P-163-1225731-00

PATIENT
  Age: 27 Year
  Sex: Female

DRUGS (4)
  1. LUPRON DEPOT [Suspect]
     Indication: ENDOMETRIOSIS
     Dates: start: 2006, end: 2006
  2. LUPRON DEPOT [Suspect]
     Dates: start: 2009, end: 2010
  3. LUPRON DEPOT [Suspect]
     Indication: ENDOMETRIOSIS
     Dates: start: 2013, end: 201309
  4. GENERESS FE [Concomitant]
     Indication: PRODUCT USED FOR UNKNOWN INDICATION
     Route: 048

REACTIONS (12)
  - Ovarian cyst [Unknown]
  - Pelvic pain [Not Recovered/Not Resolved]
  - Endometriosis [Unknown]
  - Drug ineffective [Unknown]
  - Fatigue [Not Recovered/Not Resolved]
  - Mood altered [Not Recovered/Not Resolved]
  - Irritability [Not Recovered/Not Resolved]
  - Depression [Not Recovered/Not Resolved]
  - Hot flush [Recovering/Resolving]
  - Urinary tract infection [Not Recovered/Not Resolved]
  - Blood urine [Unknown]
  - Menstruation irregular [Unknown]
